FAERS Safety Report 6634399-2 (Version None)
Quarter: 2010Q1

REPORT INFORMATION
  Report Type: 
  Country: None (occurrence: None)
  Receive Date: 20100315
  Receipt Date: 20100304
  Transmission Date: 20100710
  Serious: Yes (Death, Other)
  Sender: FDA-Public Use
  Company Number: US-ROCHE-682768

PATIENT
  Sex: Female
  Weight: 117.5 kg

DRUGS (2)
  1. CAPECITABINE [Suspect]
     Indication: COLORECTAL CANCER
     Dosage: ROUTE: BY MOUTH
     Route: 048
     Dates: start: 20091222, end: 20100201
  2. OXALIPLATIN [Concomitant]
     Indication: COLORECTAL CANCER
     Route: 042
     Dates: start: 20100113

REACTIONS (9)
  - ASTHENIA [None]
  - DEATH [None]
  - DIARRHOEA [None]
  - RASH [None]
  - RASH MACULAR [None]
  - SKIN EXFOLIATION [None]
  - STOMATITIS [None]
  - VOMITING [None]
  - WEIGHT DECREASED [None]
